FAERS Safety Report 6877644-0 (Version None)
Quarter: 2010Q3

REPORT INFORMATION
  Report Type: 
  Country: None (occurrence: None)
  Receive Date: 20100727
  Receipt Date: 20100423
  Transmission Date: 20110219
  Serious: No
  Sender: FDA-Public Use
  Company Number: US-ABBOTT-10P-163-0641443-00

PATIENT
  Sex: Female
  Weight: 57.658 kg

DRUGS (3)
  1. SYNTHROID [Suspect]
     Indication: THYROID DISORDER
     Dates: start: 20100409, end: 20100420
  2. SYNTHROID [Suspect]
     Dosage: 1/2 TAB QD
     Dates: start: 20100401, end: 20100409
  3. SYNTHROID [Suspect]
     Dosage: 1/2 TAB QD
     Dates: start: 20100420

REACTIONS (4)
  - BLOOD THYROID STIMULATING HORMONE INCREASED [None]
  - INSOMNIA [None]
  - NERVOUSNESS [None]
  - PALPITATIONS [None]
